FAERS Safety Report 7960931-2 (Version None)
Quarter: 2011Q4

REPORT INFORMATION
  Report Type: 
  Country: None (occurrence: None)
  Receive Date: 20111202
  Receipt Date: 20111118
  Transmission Date: 20120403
  Serious: Yes (Hospitalization)
  Sender: FDA-Public Use
  Company Number: JP-2011-12088

PATIENT

DRUGS (2)
  1. HANP (CARPERITIDE) [Concomitant]
  2. SAMSCA [Suspect]
     Dosage: 3.7 5 MG MILLIGRAM(S), QOD, ORAL
     Route: 048
     Dates: start: 20111110

REACTIONS (1)
  - WHITE BLOOD CELL COUNT DECREASED [None]
